FAERS Safety Report 7043271-8 (Version None)
Quarter: 2010Q4

REPORT INFORMATION
  Report Type: 
  Country: None (occurrence: None)
  Receive Date: 20101013
  Receipt Date: 20091111
  Transmission Date: 20110411
  Serious: No
  Sender: FDA-Public Use
  Company Number: US-ASTRAZENECA-2009SE26009

PATIENT
  Age: 70 Year
  Sex: Male

DRUGS (3)
  1. SYMBICORT [Suspect]
     Dosage: 320 MCG TOTAL DAILY DOSE
     Route: 055
     Dates: start: 20091001, end: 20091106
  2. NEXIUM [Suspect]
     Route: 048
     Dates: start: 20080101
  3. SPIRIVA [Concomitant]

REACTIONS (5)
  - BALANCE DISORDER [None]
  - COUGH [None]
  - DIZZINESS [None]
  - HEADACHE [None]
  - NIGHT SWEATS [None]
